FAERS Safety Report 8354248-4 (Version None)
Quarter: 2012Q2

REPORT INFORMATION
  Report Type: 
  Country: None (occurrence: None)
  Receive Date: 20120511
  Receipt Date: 20120503
  Transmission Date: 20120825
  Serious: Yes (Hospitalization, Other)
  Sender: FDA-Public Use
  Company Number: US-ASTRAZENECA-2012SE21846

PATIENT
  Age: 48 Year
  Sex: Female
  Weight: 63.5 kg

DRUGS (26)
  1. SEROQUEL XR [Suspect]
     Route: 048
  2. SEROQUEL XR [Suspect]
     Route: 048
  3. SEROQUEL XR [Suspect]
     Route: 048
  4. SEROQUEL XR [Suspect]
     Route: 048
  5. SEROQUEL XR [Suspect]
     Route: 048
  6. LASIX [Concomitant]
  7. SEROQUEL XR [Suspect]
     Route: 048
  8. SEROQUEL XR [Suspect]
     Route: 048
  9. SEROQUEL XR [Suspect]
     Route: 048
  10. PROZAC [Suspect]
     Route: 065
  11. SEROQUEL XR [Suspect]
     Indication: ANXIETY DISORDER
     Route: 048
  12. SEROQUEL XR [Suspect]
     Indication: MENTAL DISORDER
     Route: 048
  13. SEROQUEL XR [Suspect]
     Route: 048
  14. NARCOTICS [Concomitant]
     Indication: ANALGESIC THERAPY
  15. SEROQUEL XR [Suspect]
     Indication: SCHIZOPHRENIA
     Route: 048
  16. SEROQUEL XR [Suspect]
     Route: 048
  17. SEROQUEL XR [Suspect]
     Route: 048
  18. SEROQUEL XR [Suspect]
     Dosage: 150 MG EVERY MORNING AND 300 MG AT NIGHT
     Route: 048
     Dates: start: 20100101
  19. SEROQUEL XR [Suspect]
     Dosage: 150 MG EVERY MORNING AND 300 MG AT NIGHT
     Route: 048
     Dates: start: 20100101
  20. SEROQUEL XR [Suspect]
     Route: 048
  21. ATIVAN [Suspect]
     Route: 065
  22. XANAX [Suspect]
     Route: 065
  23. SEROQUEL XR [Suspect]
     Route: 048
  24. SEROQUEL XR [Suspect]
     Route: 048
  25. SEROQUEL XR [Suspect]
     Route: 048
  26. SEROQUEL XR [Suspect]
     Dosage: 150 MG EVERY MORNING AND 300 MG AT NIGHT
     Route: 048
     Dates: start: 20100101

REACTIONS (16)
  - CONDITION AGGRAVATED [None]
  - MENTAL DISORDER [None]
  - DRUG WITHDRAWAL SYNDROME [None]
  - SOMATOFORM DISORDER [None]
  - PSYCHOTIC DISORDER [None]
  - HYPERVENTILATION [None]
  - DISTURBANCE IN ATTENTION [None]
  - VERTIGO [None]
  - VISUAL IMPAIRMENT [None]
  - ANXIETY DISORDER [None]
  - BRONCHITIS [None]
  - THINKING ABNORMAL [None]
  - DEPERSONALISATION [None]
  - DEPRESSION [None]
  - PANIC ATTACK [None]
  - INTENTIONAL DRUG MISUSE [None]
